FAERS Safety Report 8021957-6 (Version None)
Quarter: 2012Q1

REPORT INFORMATION
  Report Type: 
  Country: None (occurrence: None)
  Receive Date: 20120104
  Receipt Date: 20111230
  Transmission Date: 20120608
  Serious: Yes (Disabling, Other)
  Sender: FDA-Public Use
  Company Number: PHHY2011IT113748

PATIENT
  Sex: Male

DRUGS (1)
  1. LEVOFLOXACIN [Suspect]
     Indication: DYSURIA
     Dosage: 500 MG, QD
     Route: 048
     Dates: start: 20111221, end: 20111223

REACTIONS (2)
  - VISION BLURRED [None]
  - DIPLOPIA [None]
